FAERS Safety Report 24429197 (Version 3)
Quarter: 2025Q1

REPORT INFORMATION
  Report Type: Spontaneous
  Country: ES (occurrence: ES)
  Receive Date: 20241011
  Receipt Date: 20250305
  Transmission Date: 20250409
  Serious: Yes (Life-Threatening)
  Sender: TEVA
  Company Number: None

PATIENT
  Age: 26 Year
  Sex: Female
  Weight: 52 kg

DRUGS (3)
  1. ALPRAZOLAM [Suspect]
     Active Substance: ALPRAZOLAM
     Indication: Suicide attempt
     Route: 048
     Dates: start: 20240529, end: 20240529
  2. RIVOTRIL [Suspect]
     Active Substance: CLONAZEPAM
     Indication: Suicide attempt
     Route: 048
     Dates: start: 20240529, end: 20240529
  3. QUETIAPINE FUMARATE [Suspect]
     Active Substance: QUETIAPINE FUMARATE
     Indication: Suicide attempt
     Route: 048
     Dates: start: 20240529, end: 20240529

REACTIONS (2)
  - Intentional overdose [Recovered/Resolved]
  - Sedation [Recovered/Resolved]

NARRATIVE: CASE EVENT DATE: 20240529
